APPROVED DRUG PRODUCT: ESTRACE
Active Ingredient: ESTRADIOL
Strength: 0.5MG
Dosage Form/Route: TABLET;ORAL
Application: A081295 | Product #001
Applicant: BRISTOL MYERS SQUIBB CO
Approved: Jun 30, 1993 | RLD: No | RS: No | Type: DISCN